FAERS Safety Report 8631839 (Version 2)
Quarter: 2013Q1

REPORT INFORMATION
  Report Type: Spontaneous
  Country: GB (occurrence: GB)
  Receive Date: 20120625
  Receipt Date: 20130315
  Transmission Date: 20140127
  Serious: Yes (Other)
  Sender: FDA-Public Use
  Company Number: GB-JNJFOC-20120608936

PATIENT
  Sex: Female

DRUGS (14)
  1. SIMPONI [Suspect]
     Indication: RHEUMATOID ARTHRITIS
     Route: 058
     Dates: start: 20120605
  2. SIMPONI [Suspect]
     Indication: RHEUMATOID ARTHRITIS
     Route: 058
     Dates: start: 201201
  3. METHOTREXATE [Concomitant]
     Route: 065
  4. SULFASALAZINE [Concomitant]
     Route: 065
  5. HYDROXYCHLOROQUINE [Concomitant]
     Route: 065
  6. FOLIC ACID [Concomitant]
     Route: 065
  7. LISINOPRIL [Concomitant]
     Route: 065
  8. OMEPRAZOLE [Concomitant]
     Route: 065
  9. METOCLOPRAMIDE [Concomitant]
     Route: 065
  10. CALCICHEW [Concomitant]
     Route: 065
  11. THYROXINE [Concomitant]
     Route: 065
  12. CITALOPRAM [Concomitant]
     Route: 065
  13. TRAMADOL [Concomitant]
     Route: 065
  14. PARACETAMOL [Concomitant]
     Route: 065

REACTIONS (3)
  - Clavicle fracture [Unknown]
  - Ligament rupture [Unknown]
  - Fall [Unknown]
